FAERS Safety Report 8247593-4 (Version None)
Quarter: 2012Q1

REPORT INFORMATION
  Report Type: 
  Country: None (occurrence: None)
  Receive Date: 20120330
  Receipt Date: 20120326
  Transmission Date: 20120608
  Serious: Yes (Death)
  Sender: FDA-Public Use
  Company Number: PHHY2012IS026546

PATIENT
  Age: 78 Year
  Sex: Male

DRUGS (1)
  1. SIMVASTATIN [Suspect]
     Dosage: 20 MG, UNK

REACTIONS (1)
  - HEPATOTOXICITY [None]
